FAERS Safety Report 14151819 (Version 1)
Quarter: 2017Q4

REPORT INFORMATION
  Report Type: Spontaneous
  Country: US (occurrence: US)
  Receive Date: 20171101
  Receipt Date: 20171101
  Transmission Date: 20180321
  Serious: No
  Sender: FDA-Public Use
  Company Number: None

PATIENT
  Age: 38 Year
  Sex: Female
  Weight: 67.1 kg

DRUGS (1)
  1. FECAL TRANSPLANT [Suspect]
     Active Substance: FECAL MICROBIOTA
     Indication: POUCHITIS
     Dosage: ?          OTHER FREQUENCY:ONCE;?
     Route: 054
     Dates: start: 20171018, end: 20171018

REACTIONS (3)
  - Abdominal distension [None]
  - Rectal haemorrhage [None]
  - Abdominal discomfort [None]

NARRATIVE: CASE EVENT DATE: 20171028
